FAERS Safety Report 5799113-1 (Version None)
Quarter: 2008Q3

REPORT INFORMATION
  Report Type: 
  Country: None (occurrence: None)
  Receive Date: 20080702
  Receipt Date: 20080623
  Transmission Date: 20090109
  Serious: No
  Sender: FDA-Public Use
  Company Number: US-BOEHRINGER INGELHEIM GMBH, GERMANY-2008-BP-07026BP

PATIENT
  Sex: Female

DRUGS (11)
  1. SPIRIVA [Suspect]
     Indication: EMPHYSEMA
     Route: 055
     Dates: start: 20050101
  2. ASACOL [Concomitant]
     Indication: COLITIS ULCERATIVE
  3. LOVASTATIN [Concomitant]
     Indication: BLOOD CHOLESTEROL INCREASED
  4. LISINOPRIL [Concomitant]
     Indication: HYPERTENSION
  5. TIKOSYN [Concomitant]
     Indication: HEART RATE IRREGULAR
  6. CARDIZEM [Concomitant]
     Indication: HEART RATE IRREGULAR
  7. SINGULAIR [Concomitant]
     Indication: EMPHYSEMA
  8. ASPIRIN [Concomitant]
  9. COUMADIN [Concomitant]
     Indication: HEART RATE IRREGULAR
  10. CARTIA XT [Concomitant]
  11. OXYGEN [Concomitant]

REACTIONS (1)
  - PAINFUL RESPIRATION [None]
